FAERS Safety Report 9369412 (Version 1)
Quarter: 2013Q2

REPORT INFORMATION
  Report Type: Spontaneous
  Country: AU (occurrence: AU)
  Receive Date: 20130626
  Receipt Date: 20130626
  Transmission Date: 20140414
  Serious: Yes (Hospitalization, Other)
  Sender: FDA-Public Use
  Company Number: AU-009507513-1306AUS012498

PATIENT
  Sex: Male

DRUGS (4)
  1. BOCEPREVIR [Suspect]
     Indication: LIVER DISORDER
  2. RIBAVIRIN [Suspect]
     Indication: LIVER DISORDER
  3. DIAZEPAM [Suspect]
  4. PEGASYS [Suspect]
     Indication: LIVER DISORDER

REACTIONS (4)
  - Suicide attempt [Unknown]
  - Confusional state [Unknown]
  - Haemoglobin decreased [Unknown]
  - Overdose [Unknown]
